FAERS Safety Report 17396090 (Version 3)
Quarter: 2020Q2

REPORT INFORMATION
  Report Type: Spontaneous
  Country: JP (occurrence: JP)
  Receive Date: 20200210
  Receipt Date: 20200526
  Transmission Date: 20200713
  Serious: Yes (Death, Life-Threatening, Other)
  Sender: FDA-Public Use
  Company Number: JP-ELI_LILLY_AND_COMPANY-JP202002000570

PATIENT
  Age: 65 Year
  Sex: Male
  Weight: 54 kg

DRUGS (12)
  1. CISPLATIN. [Concomitant]
     Active Substance: CISPLATIN
     Indication: SQUAMOUS CELL CARCINOMA
     Dosage: 80 MG, DAILY
     Route: 065
  2. NAIXAN [NAPROXEN SODIUM] [Concomitant]
     Indication: ANTIPYRESIS
     Dosage: 1 DOSAGE FORM, UNKNOWN
     Route: 065
  3. LOPEMIN [LOPERAMIDE HYDROCHLORIDE] [Concomitant]
     Active Substance: LOPERAMIDE HYDROCHLORIDE
     Indication: PRODUCT USED FOR UNKNOWN INDICATION
     Dosage: 1 DOSAGE FORM, UNKNOWN
     Route: 065
  4. NEXIUM I.V. [Concomitant]
     Active Substance: ESOMEPRAZOLE SODIUM
     Indication: PROPHYLAXIS
     Dosage: 1 DOSAGE FORM, UNKNOWN
     Route: 065
  5. ALDACTONE A [Concomitant]
     Active Substance: SPIRONOLACTONE
     Indication: OEDEMA
     Dosage: 1 DOSAGE FORM, UNKNOWN
     Route: 065
  6. CODEINE PHOSPHATE [Concomitant]
     Active Substance: CODEINE PHOSPHATE
     Indication: PRODUCT USED FOR UNKNOWN INDICATION
     Dosage: 1 DOSAGE FORM, UNKNOWN
     Route: 065
  7. CALONAL [Concomitant]
     Active Substance: ACETAMINOPHEN
     Indication: ANALGESIC THERAPY
     Dosage: 1 DOSAGE FORM, UNKNOWN
     Route: 065
  8. PURSENNID EX-LAX [SENNOSIDE A+B CALCIUM] [Concomitant]
     Indication: CONSTIPATION
     Dosage: 1 DOSAGE FORM, UNKNOWN
     Route: 065
  9. FUROSEMIDE. [Concomitant]
     Active Substance: FUROSEMIDE
     Indication: FACE OEDEMA
     Dosage: 1 DOSAGE FORM, UNKNOWN
     Route: 065
  10. PORTRAZZA [Suspect]
     Active Substance: NECITUMUMAB
     Indication: SQUAMOUS CELL CARCINOMA OF LUNG
     Dosage: 800 MG, UNKNOWN
     Route: 042
     Dates: start: 20200121
  11. MEDICON [DEXTROMETHORPHAN HYDROBROMIDE] [Concomitant]
     Active Substance: DEXTROMETHORPHAN HYDROBROMIDE
     Indication: PRODUCT USED FOR UNKNOWN INDICATION
     Dosage: 1 DOSAGE FORM, UNKNOWN
     Route: 065
  12. GEMCITABINE HYDROCHLORIDE. [Concomitant]
     Active Substance: GEMCITABINE HYDROCHLORIDE
     Indication: SQUAMOUS CELL CARCINOMA
     Dosage: 1600 MG, DAILY
     Route: 042

REACTIONS (14)
  - Hypoglycaemia [Unknown]
  - Somnolence [Unknown]
  - Ear haemorrhage [Unknown]
  - Effusion [Unknown]
  - Insulinoma [Unknown]
  - Renal disorder [Unknown]
  - Hypomagnesaemia [Unknown]
  - Penile pain [Unknown]
  - Malignant neoplasm progression [Fatal]
  - Skin erosion [Unknown]
  - Penile blister [Unknown]
  - Ear pruritus [Unknown]
  - Nausea [Unknown]
  - Decreased appetite [Unknown]

NARRATIVE: CASE EVENT DATE: 20200125
